FAERS Safety Report 4608750-9 (Version None)
Quarter: 2005Q1

REPORT INFORMATION
  Report Type: 
  Country: None (occurrence: None)
  Receive Date: 20050309
  Receipt Date: 20050223
  Transmission Date: 20050727
  Serious: Yes (Hospitalization, Other)
  Sender: FDA-Public Use
  Company Number: JP_041205385

PATIENT
  Age: 78 Year
  Sex: Female
  Weight: 42 kg

DRUGS (6)
  1. EVISTA [Suspect]
     Indication: OSTEOPOROSIS POSTMENOPAUSAL
     Dosage: 60 MG/ 1 DAY
     Dates: start: 20040720, end: 20041122
  2. FAMOTIDINE [Concomitant]
  3. NORVASC [Concomitant]
  4. GASMOTIN (MOSAPRIDE CITRATE) [Concomitant]
  5. TOUGHMAC E [Concomitant]
  6. LAC B (LACTOBACILLUS BIFIDUS, LYOPHILIZED) [Concomitant]

REACTIONS (7)
  - ARTHROPATHY [None]
  - DEEP VEIN THROMBOSIS [None]
  - FALL [None]
  - FEELING ABNORMAL [None]
  - PNEUMOTHORAX [None]
  - PULMONARY EMBOLISM [None]
  - TIBIA FRACTURE [None]
